FAERS Safety Report 6570431-2 (Version None)
Quarter: 2010Q1

REPORT INFORMATION
  Report Type: 
  Country: None (occurrence: None)
  Receive Date: 20100204
  Receipt Date: 20090427
  Transmission Date: 20100710
  Serious: No
  Sender: FDA-Public Use
  Company Number: A0780772A

PATIENT
  Age: 79 Year
  Sex: Female

DRUGS (4)
  1. ARIXTRA [Suspect]
     Indication: PULMONARY EMBOLISM
     Dosage: 5MG PER DAY
     Route: 058
     Dates: start: 20090226
  2. MICARDIS [Concomitant]
  3. REVATIO [Concomitant]
  4. OXYGEN [Concomitant]

REACTIONS (1)
  - GINGIVAL BLEEDING [None]
